FAERS Safety Report 4932805-2 (Version None)
Quarter: 2006Q1

REPORT INFORMATION
  Report Type: 
  Country: None (occurrence: None)
  Receive Date: 20060306
  Receipt Date: 20060227
  Transmission Date: 20060701
  Serious: Yes (Life-Threatening)
  Sender: FDA-Public Use
  Company Number: 2006AC00353

PATIENT
  Age: 16 Year
  Sex: Female
  Weight: 33 kg

DRUGS (3)
  1. PROPOFOL [Suspect]
     Indication: ANAESTHESIA
     Dosage: 9.1MG/KG.HR, STOPPED DUE TO INCREASINGLY DARKISH URINE
  2. PIRITRAMIDE [Concomitant]
     Indication: ANAESTHESIA
  3. NOREPINEPHRINE [Concomitant]
     Indication: ANAESTHESIA

REACTIONS (7)
  - ATRIOVENTRICULAR BLOCK COMPLETE [None]
  - BLOOD PRESSURE DECREASED [None]
  - HEART RATE INCREASED [None]
  - NODAL RHYTHM [None]
  - OPERATIVE HAEMORRHAGE [None]
  - PROPOFOL INFUSION SYNDROME [None]
  - URINE COLOUR ABNORMAL [None]
